FAERS Safety Report 8895294 (Version 1)
Quarter: 2012Q4

REPORT INFORMATION
  Report Type: 
  Country: US (occurrence: US)
  Receive Date: 20121108
  Receipt Date: 20121108
  Transmission Date: 20130627
  Serious: Yes (Hospitalization, Other)
  Sender: FDA-Public Use
  Company Number: US-TEVA-369037USA

PATIENT
  Age: 43 Year
  Sex: Female

DRUGS (8)
  1. LISINOPRIL [Suspect]
     Dosage: 2.5 Milligram Daily; 2.5mg per day
     Route: 065
  2. NEOSYNEPHRINE [Interacting]
     Indication: HYPOTENSION
     Dosage: boluses of 80 microg/mL
     Route: 065
  3. MANNITOL [Concomitant]
     Indication: CARDIOPULMONARY BYPASS
     Dosage: 25g
     Route: 065
  4. AMICAR [Concomitant]
     Indication: CARDIOPULMONARY BYPASS
     Dosage: 10g
     Route: 065
  5. LIDOCAINE [Concomitant]
     Indication: CARDIOPULMONARY BYPASS
     Dosage: 100mg
     Route: 065
  6. SODIUM BICARBONATE [Concomitant]
     Indication: CARDIOPULMONARY BYPASS
     Dosage: 50 meq
     Route: 065
  7. HEPARIN [Concomitant]
     Indication: CARDIOPULMONARY BYPASS
     Dosage: 10 000U; then received 26 000U
     Route: 065
  8. HEPARIN [Concomitant]
     Indication: CARDIOPULMONARY BYPASS
     Dosage: 26 000U
     Route: 065

REACTIONS (3)
  - Hypotension [Recovering/Resolving]
  - Therapeutic response decreased [Recovered/Resolved]
  - Drug interaction [Recovered/Resolved]
